FAERS Safety Report 7051458-3 (Version None)
Quarter: 2010Q4

REPORT INFORMATION
  Report Type: 
  Country: None (occurrence: None)
  Receive Date: 20101019
  Receipt Date: 20101012
  Transmission Date: 20110411
  Serious: Yes (Death, Hospitalization)
  Sender: FDA-Public Use
  Company Number: A0886147A

PATIENT
  Age: 63 Year
  Sex: Female

DRUGS (3)
  1. FLOLAN [Suspect]
     Indication: PRODUCT USED FOR UNKNOWN INDICATION
     Route: 042
     Dates: start: 20000905, end: 20030522
  2. FLOLAN [Suspect]
  3. DIURETICS [Concomitant]

REACTIONS (2)
  - DEATH [None]
  - MALAISE [None]
